FAERS Safety Report 16040262 (Version 1)
Quarter: 2019Q1

REPORT INFORMATION
  Report Type: Spontaneous
  Country: US (occurrence: US)
  Receive Date: 20190206
  Receipt Date: 20190206
  Transmission Date: 20190418
  Serious: Yes (Other)
  Sender: FDA-Public Use
  Company Number: None

PATIENT
  Age: 61 Year
  Sex: Female

DRUGS (1)
  1. INVEGA SUSTENNA [Suspect]
     Active Substance: PALIPERIDONE PALMITATE
     Indication: BIPOLAR DISORDER
     Dosage: ?          OTHER
     Route: 030
     Dates: start: 20150516

REACTIONS (4)
  - Muscle twitching [None]
  - Headache [None]
  - Tremor [None]
  - Musculoskeletal stiffness [None]

NARRATIVE: CASE EVENT DATE: 20190201
